FAERS Safety Report 22191859 (Version 3)
Quarter: 2023Q2

REPORT INFORMATION
  Report Type: Report from Study
  Country: EG (occurrence: EG)
  Receive Date: 20230410
  Receipt Date: 20230517
  Transmission Date: 20230721
  Serious: Yes (Other)
  Sender: FDA-Public Use
  Company Number: EG-002147023-NVSC2023EG077379

PATIENT
  Sex: Female

DRUGS (3)
  1. GLIVEC [Suspect]
     Active Substance: IMATINIB MESYLATE
     Indication: Chronic myeloid leukaemia
     Dosage: 400 MG, QD (4 CAPS\DAY)
     Route: 048
     Dates: start: 201308
  2. GLIVEC [Suspect]
     Active Substance: IMATINIB MESYLATE
     Dosage: 600 MG, QD (6 CAPS/DAY)
     Route: 065
     Dates: end: 202207
  3. GLIVEC [Suspect]
     Active Substance: IMATINIB MESYLATE
     Indication: Chronic myeloid leukaemia
     Dosage: 400 MG, QD (1 TAB\DAY)
     Route: 048

REACTIONS (14)
  - Tooth socket haemorrhage [Recovered/Resolved]
  - Cytogenetic analysis abnormal [Recovered/Resolved]
  - Vomiting [Recovered/Resolved]
  - Dizziness [Recovered/Resolved]
  - Hypotension [Recovered/Resolved]
  - Cytogenetic analysis abnormal [Recovered/Resolved]
  - Cytogenetic analysis abnormal [Recovered/Resolved]
  - Haemorrhage subcutaneous [Recovered/Resolved]
  - Contusion [Recovered/Resolved]
  - White blood cell count decreased [Recovered/Resolved]
  - Platelet count decreased [Recovered/Resolved]
  - Haemoglobin decreased [Recovered/Resolved]
  - Cytogenetic analysis abnormal [Recovered/Resolved]
  - Drug ineffective [Not Recovered/Not Resolved]

NARRATIVE: CASE EVENT DATE: 20130101
